FAERS Safety Report 7364933-9 (Version None)
Quarter: 2011Q1

REPORT INFORMATION
  Report Type: 
  Country: None (occurrence: None)
  Receive Date: 20110321
  Receipt Date: 20110315
  Transmission Date: 20110831
  Serious: Yes (Death)
  Sender: FDA-Public Use
  Company Number: SE-CEPHALON-2011001296

PATIENT

DRUGS (3)
  1. BENDAMUSTINE HCL [Suspect]
     Route: 042
     Dates: end: 20110115
  2. LENALIDOMIDE [Suspect]
     Dates: end: 20110115
  3. RITUXIMAB [Suspect]
     Dates: end: 20110115

REACTIONS (4)
  - PNEUMONIA [None]
  - NO THERAPEUTIC RESPONSE [None]
  - FEBRILE NEUTROPENIA [None]
  - NEUTROPENIC INFECTION [None]
